FAERS Safety Report 4631646-3 (Version None)
Quarter: 2005Q2

REPORT INFORMATION
  Report Type: 
  Country: None (occurrence: None)
  Receive Date: 20050407
  Receipt Date: 20050329
  Transmission Date: 20051028
  Serious: Yes (Other)
  Sender: FDA-Public Use
  Company Number: 2005051053

PATIENT
  Age: 33 Year
  Sex: Female

DRUGS (4)
  1. VIRACEPT [Suspect]
     Indication: HIV INFECTION
     Dosage: (250 MG), ORAL
     Route: 048
     Dates: start: 20030701
  2. EFAVIRENZ (EFIVIRENZ) [Suspect]
     Indication: HIV INFECTION
     Dosage: 600 MG (DAILY), ORAL
     Route: 048
     Dates: start: 20030701
  3. STAVUDINE [Suspect]
     Indication: HIV INFECTION
     Dosage: ORAL
     Route: 048
  4. DIDANOSINE [Concomitant]

REACTIONS (4)
  - DRUG EXPOSURE DURING PREGNANCY [None]
  - INTRA-UTERINE DEATH [None]
  - PREMATURE BABY [None]
  - STILLBIRTH [None]
